FAERS Safety Report 10919978 (Version 1)
Quarter: 2015Q1

REPORT INFORMATION
  Report Type: Spontaneous
  Country: US (occurrence: US)
  Receive Date: 20150317
  Receipt Date: 20150317
  Transmission Date: 20150721
  Serious: Yes (Other)
  Sender: FDA-Public Use
  Company Number: PHHY2015US028196

PATIENT
  Age: 21 Year
  Sex: Female

DRUGS (15)
  1. HEPARIN [Suspect]
     Active Substance: HEPARIN SODIUM
     Indication: DEEP VEIN THROMBOSIS
     Route: 058
  2. BACITRACIN. [Suspect]
     Active Substance: BACITRACIN
     Indication: THERMAL BURN
     Route: 065
  3. TERBUTALINE [Suspect]
     Active Substance: TERBUTALINE
     Indication: PRODUCT USED FOR UNKNOWN INDICATION
     Dosage: 0.25 MG, UNK
     Route: 058
  4. LACTATED RINGERS [Suspect]
     Active Substance: CALCIUM CHLORIDE\POTASSIUM CHLORIDE\SODIUM CHLORIDE\SODIUM LACTATE
     Indication: RESUSCITATION
     Dosage: 500 ML, PER HR
     Route: 040
  5. FENTANYL. [Suspect]
     Active Substance: FENTANYL
     Route: 065
  6. ROCURONIUM BROMIDE. [Suspect]
     Active Substance: ROCURONIUM BROMIDE
     Indication: INDUCTION AND MAINTENANCE OF ANAESTHESIA
     Dosage: 40 MG, UNK
     Route: 065
  7. PROPOFOL. [Suspect]
     Active Substance: PROPOFOL
     Indication: INDUCTION AND MAINTENANCE OF ANAESTHESIA
     Dosage: 200 MG, UNK
     Route: 065
  8. BETAMETHASONE [Suspect]
     Active Substance: BETAMETHASONE
     Indication: MATERNAL THERAPY TO ENHANCE FOETAL LUNG MATURITY
     Route: 065
  9. OXYGEN. [Concomitant]
     Active Substance: OXYGEN
     Indication: PRODUCT USED FOR UNKNOWN INDICATION
     Dosage: 15 UNK, UNK
     Route: 065
  10. MORPHINE SULFATE. [Suspect]
     Active Substance: MORPHINE SULFATE
     Indication: PAIN
     Dosage: 46 MG, UNK
     Route: 042
  11. METOCLOPRAMIDE. [Suspect]
     Active Substance: METOCLOPRAMIDE
     Indication: GENERAL ANAESTHESIA
     Route: 042
  12. SEVOFLURANE. [Suspect]
     Active Substance: SEVOFLURANE
     Indication: ANAESTHESIA
     Route: 065
  13. FAMOTIDINE. [Suspect]
     Active Substance: FAMOTIDINE
     Indication: PROPHYLAXIS AGAINST GASTROINTESTINAL ULCER
     Dosage: UNK
     Route: 042
  14. SILVADENE [Suspect]
     Active Substance: SILVER SULFADIAZINE
     Indication: THERMAL BURN
     Route: 061
  15. SODIUM CITRATE. [Suspect]
     Active Substance: SODIUM CITRATE
     Indication: GENERAL ANAESTHESIA
     Route: 048

REACTIONS (20)
  - Maternal exposure during pregnancy [Unknown]
  - Mental disorder [None]
  - Skin graft [None]
  - Haematocrit decreased [None]
  - Pain [None]
  - Body temperature decreased [None]
  - Tachycardia [None]
  - Drug dependence [None]
  - Premature delivery [Unknown]
  - Deep vein thrombosis [None]
  - Oesophagitis [None]
  - Mobility decreased [None]
  - Periorbital oedema [None]
  - Haemoglobin decreased [None]
  - Anxiety [None]
  - Blood pressure diastolic decreased [None]
  - Caesarean section [None]
  - Bacteraemia [None]
  - Depressive symptom [None]
  - Skin graft contracture [None]
